FAERS Safety Report 13998859 (Version 2)
Quarter: 2017Q4

REPORT INFORMATION
  Report Type: Spontaneous
  Country: CH (occurrence: CH)
  Receive Date: 20170922
  Receipt Date: 20171013
  Transmission Date: 20180321
  Serious: Yes (Hospitalization)
  Sender: FDA-Public Use
  Company Number: CH-BAYER-2017-176721

PATIENT
  Age: 75 Year
  Sex: Female
  Weight: 62.2 kg

DRUGS (10)
  1. FLUDEX (INDAPAMIDE) [Concomitant]
     Active Substance: INDAPAMIDE
     Dosage: 1.5 MG, QD
     Route: 048
  2. AMLODIPIN [Concomitant]
     Active Substance: AMLODIPINE BESYLATE
     Dosage: 10 MG, QD
     Route: 048
  3. PANTOZOL [Concomitant]
     Active Substance: PANTOPRAZOLE SODIUM
     Dosage: 40 MG, QD
     Route: 048
  4. SYMFONA N (GINKGO BILOBA EXTRACT) [Suspect]
     Active Substance: GINKGO
     Dosage: 120 MG, QD
     Route: 048
     Dates: end: 20170726
  5. REMICADE [Concomitant]
     Active Substance: INFLIXIMAB
     Dosage: 100 MG, Q6WK
     Route: 041
  6. ATORVASTATIN [Concomitant]
     Active Substance: ATORVASTATIN
     Dosage: 40 MG, QD
     Route: 048
  7. ASPIRIN CARDIO 100 MG [Suspect]
     Active Substance: ASPIRIN
     Indication: PERIPHERAL ARTERIAL OCCLUSIVE DISEASE
     Dosage: 100 MG, QD
     Route: 048
     Dates: start: 20170705
  8. TORASEMID SANDOZ [Concomitant]
     Active Substance: TORSEMIDE
     Dosage: 10 MG, QD
     Route: 048
  9. PLAVIX [Suspect]
     Active Substance: CLOPIDOGREL BISULFATE
     Dosage: 75 MG, QD
     Route: 048
  10. BELOC ZOK [Concomitant]
     Active Substance: METOPROLOL SUCCINATE
     Dosage: 50 MG, QD
     Route: 048

REACTIONS (1)
  - Hyphaema [Recovered/Resolved]

NARRATIVE: CASE EVENT DATE: 20170726
